FAERS Safety Report 5700140-0 (Version None)
Quarter: 2008Q2

REPORT INFORMATION
  Report Type: 
  Country: None (occurrence: None)
  Receive Date: 20080410
  Receipt Date: 20080407
  Transmission Date: 20081010
  Serious: Yes (Hospitalization)
  Sender: FDA-Public Use
  Company Number: PHNU2008DE01492

PATIENT
  Age: 82 Year
  Sex: Male

DRUGS (1)
  1. RASILEZ [Suspect]
     Dosage: 150 MG/D
     Dates: start: 20080103, end: 20080401

REACTIONS (4)
  - BIOPSY BONE MARROW ABNORMAL [None]
  - PANCYTOPENIA [None]
  - PROSTATIC OPERATION [None]
  - THROMBOCYTOPENIA [None]
